FAERS Safety Report 9695216 (Version 1)
Quarter: 2013Q4

REPORT INFORMATION
  Report Type: Spontaneous
  Country: US (occurrence: US)
  Receive Date: 20131119
  Receipt Date: 20131119
  Transmission Date: 20140711
  Serious: Yes (Hospitalization)
  Sender: FDA-Public Use
  Company Number: US-BAYER-2013-139532

PATIENT
  Age: 26 Year
  Sex: Female
  Weight: 80.27 kg

DRUGS (7)
  1. OCELLA [Suspect]
  2. YAZ [Suspect]
  3. SYNTHROID [Concomitant]
     Dosage: 112 UNK, UNK
  4. PEPCID [Concomitant]
  5. DECADRON [Concomitant]
  6. KEPPRA [Concomitant]
  7. DILANTIN [Concomitant]

REACTIONS (1)
  - Pulmonary embolism [None]
